FAERS Safety Report 4899744-7 (Version None)
Quarter: 2006Q1

REPORT INFORMATION
  Report Type: 
  Country: None (occurrence: None)
  Receive Date: 20060118
  Receipt Date: 20050725
  Transmission Date: 20060701
  Serious: No
  Sender: FDA-Public Use
  Company Number: 2005001437

PATIENT
  Sex: Male

DRUGS (4)
  1. TARCEVA [Suspect]
     Indication: GLIOMA
     Dosage: 300 MG (QD) ; 150 MG (QD) : ORAL
     Route: 048
     Dates: start: 20050716
  2. TEMOZOLOMIDE (TEMOZOLOMIDE) [Suspect]
     Indication: GLIOMA
  3. TRILEPTAL [Concomitant]
  4. DIPHENHYDRAMINE HCL [Concomitant]

REACTIONS (2)
  - PYREXIA [None]
  - RASH [None]
